FAERS Safety Report 21988870 (Version 1)
Quarter: 2023Q1

REPORT INFORMATION
  Report Type: Other
  Country: IN (occurrence: None)
  Receive Date: 20230214
  Receipt Date: 20230214
  Transmission Date: 20230418
  Serious: Yes (Death, Hospitalization)
  Sender: FDA-Public Use
  Company Number: IN-ROCHE-3249825

PATIENT
  Age: 54 Year
  Sex: Female

DRUGS (1)
  1. TECENTRIQ [Suspect]
     Active Substance: ATEZOLIZUMAB
     Indication: Lung cancer metastatic
     Route: 042
     Dates: start: 20220815

REACTIONS (2)
  - Sepsis [Recovered/Resolved]
  - Neoplasm malignant [Fatal]

NARRATIVE: CASE EVENT DATE: 20230125
